FAERS Safety Report 4834125-3 (Version None)
Quarter: 2005Q4

REPORT INFORMATION
  Report Type: 
  Country: None (occurrence: None)
  Receive Date: 20051122
  Receipt Date: 20051116
  Transmission Date: 20060501
  Serious: Yes (Hospitalization)
  Sender: FDA-Public Use
  Company Number: US-BRISTOL-MYERS SQUIBB COMPANY-13183090

PATIENT
  Age: 62 Year
  Sex: Female

DRUGS (5)
  1. CISPLATIN [Suspect]
     Indication: SQUAMOUS CELL CARCINOMA
     Route: 042
     Dates: start: 20020425, end: 20020425
  2. CARBOPLATIN [Suspect]
     Indication: SQUAMOUS CELL CARCINOMA
     Route: 042
     Dates: start: 20020425, end: 20020425
  3. BLINDED: CETUXIMAB [Suspect]
     Indication: SQUAMOUS CELL CARCINOMA
     Route: 042
     Dates: start: 20020425, end: 20020425
  4. BLINDED: PLACEBO [Suspect]
     Indication: SQUAMOUS CELL CARCINOMA
     Dates: start: 20020425, end: 20020425
  5. CORTICOSTEROID [Concomitant]
     Indication: OTITIS MEDIA
     Dates: start: 20020311, end: 20020506

REACTIONS (1)
  - CATHETER SITE INFECTION [None]
